FAERS Safety Report 23589494 (Version 1)
Quarter: 2024Q1

REPORT INFORMATION
  Report Type: Spontaneous
  Country: DE (occurrence: DE)
  Receive Date: 20240304
  Receipt Date: 20240304
  Transmission Date: 20240410
  Serious: Yes (Other)
  Sender: FDA-Public Use
  Company Number: DE-Merck Healthcare KGaA-2024010097

PATIENT
  Age: 84 Year
  Sex: Female

DRUGS (1)
  1. EUTHYROX [Suspect]
     Active Substance: LEVOTHYROXINE SODIUM
     Indication: Post procedural hypothyroidism
     Dosage: EUTHYROX 100 MICROGRAMM TABLETS

REACTIONS (5)
  - Ocular neoplasm [Unknown]
  - Skin disorder [Unknown]
  - Hyperhidrosis [Not Recovered/Not Resolved]
  - Product dispensing error [Unknown]
  - Incorrect dose administered [Unknown]
